FAERS Safety Report 7633603-1 (Version None)
Quarter: 2011Q3

REPORT INFORMATION
  Report Type: 
  Country: None (occurrence: None)
  Receive Date: 20110725
  Receipt Date: 20110720
  Transmission Date: 20111222
  Serious: Yes (Other)
  Sender: FDA-Public Use
  Company Number: US-GLAXOSMITHKLINE-A0937488A

PATIENT
  Age: 80 Year
  Sex: Female

DRUGS (5)
  1. CARVEDILOL [Concomitant]
  2. JANUVIA [Suspect]
     Dosage: 50MG TWICE PER DAY
     Route: 048
     Dates: start: 20110719, end: 20110720
  3. ADVAIR DISKUS 100/50 [Suspect]
     Indication: CHRONIC OBSTRUCTIVE PULMONARY DISEASE
     Dosage: 1PUFF TWICE PER DAY
     Route: 055
     Dates: start: 20110719, end: 20110720
  4. CENTRUM [Concomitant]
  5. LOSARTAN POTASSIUM [Concomitant]

REACTIONS (3)
  - DIZZINESS [None]
  - FEELING ABNORMAL [None]
  - VISUAL IMPAIRMENT [None]
